FAERS Safety Report 7320856-2 (Version None)
Quarter: 2011Q1

REPORT INFORMATION
  Report Type: 
  Country: None (occurrence: None)
  Receive Date: 20110228
  Receipt Date: 20110227
  Transmission Date: 20110831
  Serious: Yes (Hospitalization)
  Sender: FDA-Public Use
  Company Number: GB-TEVA-265926ISR

PATIENT
  Age: 76 Year
  Sex: Male

DRUGS (4)
  1. VERAPAMIL [Concomitant]
     Indication: SUPRAVENTRICULAR TACHYARRHYTHMIA
  2. FLUOROURACIL [Suspect]
     Route: 042
  3. FOLINIC ACID [Concomitant]
     Indication: RECTAL CANCER
     Route: 042
  4. CAPECITABINE [Concomitant]
     Indication: RECTAL CANCER
     Route: 048

REACTIONS (1)
  - ARTERIOSPASM CORONARY [None]
